FAERS Safety Report 7934085-2 (Version None)
Quarter: 2011Q4

REPORT INFORMATION
  Report Type: 
  Country: None (occurrence: None)
  Receive Date: 20111122
  Receipt Date: 20111107
  Transmission Date: 20120403
  Serious: Yes (Other)
  Sender: FDA-Public Use
  Company Number: JP-ROCHE-GNE321335

PATIENT
  Sex: Female

DRUGS (6)
  1. RANIBIZUMAB [Suspect]
     Route: 050
     Dates: start: 20110111
  2. RANIBIZUMAB [Suspect]
     Route: 050
     Dates: start: 20110308
  3. RANIBIZUMAB [Suspect]
     Route: 050
     Dates: start: 20110802
  4. RANIBIZUMAB [Suspect]
     Route: 050
     Dates: start: 20110208
  5. GATIFLOXACIN [Concomitant]
     Indication: PRODUCT USED FOR UNKNOWN INDICATION
     Dosage: UNK
     Dates: start: 20100401, end: 20100801
  6. RANIBIZUMAB [Suspect]
     Indication: AGE-RELATED MACULAR DEGENERATION
     Dosage: 0.05 ML, UNKNOWN
     Route: 050
     Dates: start: 20100413

REACTIONS (4)
  - RETINAL SCAR [None]
  - RETINAL HAEMORRHAGE [None]
  - CHORIORETINAL ATROPHY [None]
  - DETACHMENT OF RETINAL PIGMENT EPITHELIUM [None]
